FAERS Safety Report 21280715 (Version 2)
Quarter: 2023Q2

REPORT INFORMATION
  Report Type: Report from Study
  Country: US (occurrence: US)
  Receive Date: 20220901
  Receipt Date: 20230516
  Transmission Date: 20230722
  Serious: Yes (Other)
  Sender: FDA-Public Use
  Company Number: US-UCBSA-2022051245

PATIENT
  Age: 42 Year
  Sex: Female

DRUGS (2)
  1. BRIVARACETAM [Suspect]
     Active Substance: BRIVARACETAM
     Indication: Seizure
     Dosage: 100 MG 1.5 TABLET TWICE DAILY
  2. VIMPAT [Suspect]
     Active Substance: LACOSAMIDE
     Indication: Epilepsy
     Dosage: 200 MILLIGRAM, 2X/DAY (BID)

REACTIONS (6)
  - Fall [Not Recovered/Not Resolved]
  - Lower limb fracture [Not Recovered/Not Resolved]
  - Limb operation [Not Recovered/Not Resolved]
  - Wrist fracture [Not Recovered/Not Resolved]
  - Wrist surgery [Unknown]
  - Wrong technique in product usage process [Unknown]

NARRATIVE: CASE EVENT DATE: 20220708
